FAERS Safety Report 16935995 (Version 4)
Quarter: 2020Q3

REPORT INFORMATION
  Report Type: Spontaneous
  Country: US (occurrence: US)
  Receive Date: 20191018
  Receipt Date: 20200715
  Transmission Date: 20201102
  Serious: No
  Sender: FDA-Public Use
  Company Number: US-INSMED, INC.-US-INS-19-02720

PATIENT
  Age: 88 Year
  Sex: Female
  Weight: 48.08 kg

DRUGS (4)
  1. ARIKAYCE [Suspect]
     Active Substance: AMIKACIN
     Indication: MYCOBACTERIAL INFECTION
     Route: 055
     Dates: start: 20190717, end: 201908
  2. ARIKAYCE [Suspect]
     Active Substance: AMIKACIN
     Route: 055
     Dates: start: 201908, end: 20191012
  3. LAMIRA NEBULIZER SYSTEM [Suspect]
     Active Substance: DEVICE
  4. ARIKAYCE [Suspect]
     Active Substance: AMIKACIN
     Route: 055
     Dates: start: 20191030

REACTIONS (11)
  - Palpitations [Unknown]
  - Urinary incontinence [Not Recovered/Not Resolved]
  - Malaise [Unknown]
  - Anal incontinence [Not Recovered/Not Resolved]
  - Rash [Unknown]
  - Product dose omission issue [Unknown]
  - Diarrhoea [Recovered/Resolved]
  - Hypertonic bladder [Not Recovered/Not Resolved]
  - Frequent bowel movements [Not Recovered/Not Resolved]
  - Confusional state [Unknown]
  - Dizziness [Unknown]

NARRATIVE: CASE EVENT DATE: 2019
